FAERS Safety Report 16075865 (Version 1)
Quarter: 2019Q1

REPORT INFORMATION
  Report Type: Report from Study
  Country: IT (occurrence: IT)
  Receive Date: 20190315
  Receipt Date: 20190315
  Transmission Date: 20190418
  Serious: Yes (Other)
  Sender: FDA-Public Use
  Company Number: IT-ACCORD-113074

PATIENT
  Age: 65 Year
  Sex: Female

DRUGS (2)
  1. ABRAXANE [Suspect]
     Active Substance: PACLITAXEL
     Indication: ADENOCARCINOMA PANCREAS
     Dosage: STRENGTH: 5 MG/ML POWDER FOR  SUSPENSION FOR INFUSION
     Route: 041
     Dates: start: 20180808, end: 20180808
  2. GEMCITABINE [Suspect]
     Active Substance: GEMCITABINE\GEMCITABINE HYDROCHLORIDE
     Indication: ADENOCARCINOMA PANCREAS
     Dosage: STRENGTH: 1 G
     Route: 041
     Dates: start: 20180808, end: 20180808

REACTIONS (4)
  - Erythema [Recovering/Resolving]
  - Hyperpyrexia [Recovering/Resolving]
  - Pruritus generalised [Recovering/Resolving]
  - Arthralgia [Recovering/Resolving]

NARRATIVE: CASE EVENT DATE: 20180814
